FAERS Safety Report 7723584-4 (Version None)
Quarter: 2011Q3

REPORT INFORMATION
  Report Type: 
  Country: None (occurrence: None)
  Receive Date: 20110901
  Receipt Date: 20110823
  Transmission Date: 20111222
  Serious: Yes (Other)
  Sender: FDA-Public Use
  Company Number: NL-ASTRAZENECA-2011SE50896

PATIENT
  Age: 77 Year
  Sex: Male
  Weight: 96 kg

DRUGS (3)
  1. SINTROM [Concomitant]
     Route: 048
     Dates: start: 20030101
  2. LIDOCAINE HCL [Suspect]
     Indication: LOCAL ANAESTHESIA
     Dosage: 1 DF, 3 INJECTIONS
     Route: 065
     Dates: start: 20100707, end: 20100709
  3. LANOXIN [Concomitant]
     Route: 048
     Dates: start: 20030101

REACTIONS (1)
  - BALANCE DISORDER [None]
